FAERS Safety Report 21914406 (Version 5)
Quarter: 2023Q2

REPORT INFORMATION
  Report Type: Report from Study
  Country: CA (occurrence: CA)
  Receive Date: 20230126
  Receipt Date: 20230609
  Transmission Date: 20230721
  Serious: Yes (Other)
  Sender: FDA-Public Use
  Company Number: CA-002147023-NVSC2022CA243142

PATIENT
  Age: 26 Year
  Sex: Female

DRUGS (6)
  1. HYRIMOZ [Suspect]
     Active Substance: ADALIMUMAB-ADAZ
     Indication: Colitis ulcerative
     Dosage: 40 MG
     Route: 058
     Dates: start: 20220805
  2. HYRIMOZ [Suspect]
     Active Substance: ADALIMUMAB-ADAZ
     Dosage: UNK
     Route: 065
     Dates: start: 20221025
  3. HYRIMOZ [Suspect]
     Active Substance: ADALIMUMAB-ADAZ
     Dosage: 40 MG
     Route: 058
     Dates: start: 20230116
  4. HYRIMOZ [Suspect]
     Active Substance: ADALIMUMAB-ADAZ
     Dosage: 40 MG, QW
     Route: 058
  5. HYRIMOZ [Suspect]
     Active Substance: ADALIMUMAB-ADAZ
     Dosage: 40 MG, QW
     Route: 058
  6. HYRIMOZ [Suspect]
     Active Substance: ADALIMUMAB-ADAZ
     Dosage: 80 MG
     Route: 065

REACTIONS (21)
  - Haematochezia [Recovering/Resolving]
  - Myalgia [Unknown]
  - Malaise [Unknown]
  - Micturition urgency [Recovering/Resolving]
  - Illness [Unknown]
  - Injection site erythema [Unknown]
  - Injection site pain [Unknown]
  - Anxiety [Unknown]
  - Pruritus [Unknown]
  - Urticaria [Recovered/Resolved]
  - Pharyngitis streptococcal [Unknown]
  - Influenza [Unknown]
  - Pain [Unknown]
  - Pyrexia [Recovered/Resolved]
  - Fatigue [Unknown]
  - Chills [Unknown]
  - Oropharyngeal pain [Unknown]
  - Device defective [Unknown]
  - Product distribution issue [Unknown]
  - Inappropriate schedule of product administration [Unknown]
  - Drug ineffective [Unknown]
